FAERS Safety Report 18258155 (Version 1)
Quarter: 2020Q3

REPORT INFORMATION
  Report Type: Spontaneous
  Country: US (occurrence: US)
  Receive Date: 20200911
  Receipt Date: 20200911
  Transmission Date: 20201103
  Serious: No
  Sender: FDA-Public Use
  Company Number: US-LUNDBECK-DKLU3019849

PATIENT
  Age: 76 Year
  Sex: Male

DRUGS (1)
  1. NORTHERA [Suspect]
     Active Substance: DROXIDOPA
     Indication: PRODUCT USED FOR UNKNOWN INDICATION
     Dosage: 5 CAPSULES FOR HIS FIRST DOSE AND 3 CAPSULES FOR HIS SECOND AND THIRD DOSE
     Route: 065

REACTIONS (4)
  - Fall [Unknown]
  - Drug ineffective [Unknown]
  - Blood pressure fluctuation [Unknown]
  - Blood pressure orthostatic [Unknown]

NARRATIVE: CASE EVENT DATE: 20200813
